FAERS Safety Report 4925434-8 (Version None)
Quarter: 2006Q1

REPORT INFORMATION
  Report Type: 
  Country: None (occurrence: None)
  Receive Date: 20060228
  Receipt Date: 20050218
  Transmission Date: 20060701
  Serious: No
  Sender: FDA-Public Use
  Company Number: US-GLAXOSMITHKLINE-A0546303A

PATIENT

DRUGS (5)
  1. LAMICTAL [Suspect]
     Indication: BIPOLAR DISORDER
     Dosage: 25MG PER DAY
     Route: 048
     Dates: start: 20050214
  2. LITHIUM [Concomitant]
  3. BENICAR [Concomitant]
  4. LEVOXYL [Concomitant]
  5. ZOCOR [Concomitant]

REACTIONS (1)
  - DIARRHOEA [None]
